FAERS Safety Report 5316435-9 (Version None)
Quarter: 2007Q2

REPORT INFORMATION
  Report Type: 
  Country: None (occurrence: None)
  Receive Date: 20070504
  Receipt Date: 20070424
  Transmission Date: 20071010
  Serious: Yes (Hospitalization, Other)
  Sender: FDA-Public Use
  Company Number: PHEH2007US05386

PATIENT
  Age: 58 Year
  Sex: Female

DRUGS (6)
  1. ZELNORM [Suspect]
     Indication: IRRITABLE BOWEL SYNDROME
     Dosage: 6 MG, BID
     Route: 048
     Dates: start: 20060601, end: 20070412
  2. TOPROL-XL [Concomitant]
     Indication: HYPERTENSION
     Dosage: 100 MG, QD
     Route: 048
     Dates: start: 20020101
  3. NEXIUM [Concomitant]
     Indication: DYSPEPSIA
     Dosage: 40 MG, QD
     Route: 048
     Dates: start: 20020101
  4. SYNTHROID [Concomitant]
     Indication: HYPERTHYROIDISM
     Dosage: 112 MCG, QD
     Route: 048
     Dates: start: 19990101
  5. ZYRTEC [Concomitant]
     Indication: HYPERSENSITIVITY
     Dosage: 10 MG, PRN
     Route: 048
  6. ANTIHYPERTENSIVES [Concomitant]

REACTIONS (11)
  - ABDOMINAL PAIN UPPER [None]
  - CHEST PAIN [None]
  - FLATULENCE [None]
  - HAEMATOCHEZIA [None]
  - HYPERTENSION [None]
  - NAUSEA [None]
  - PAIN [None]
  - PALPITATIONS [None]
  - RASH ERYTHEMATOUS [None]
  - SINUSITIS [None]
  - URINARY TRACT INFECTION [None]
